FAERS Safety Report 10539947 (Version 1)
Quarter: 2014Q4

REPORT INFORMATION
  Report Type: Spontaneous
  Country: US (occurrence: None)
  Receive Date: 20141023
  Receipt Date: 20141023
  Transmission Date: 20150529
  Serious: Yes (Life-Threatening, Hospitalization)
  Sender: FDA-Public Use
  Company Number: None

PATIENT
  Age: 67 Year
  Sex: Female
  Weight: 62 kg

DRUGS (18)
  1. GABAPENTIN. [Concomitant]
     Active Substance: GABAPENTIN
  2. AVASTIN [Suspect]
     Active Substance: BEVACIZUMAB
     Indication: METASTATIC RENAL CELL CARCINOMA
     Route: 042
     Dates: start: 20140721, end: 20140922
  3. PECTASOL SUPPLEMENT [Concomitant]
  4. VITAMIN D 5000 [Concomitant]
  5. LISINOPRIL. [Concomitant]
     Active Substance: LISINOPRIL
  6. ZOLPIDEM [Concomitant]
     Active Substance: ZOLPIDEM\ZOLPIDEM TARTRATE
  7. PALEOGREENS HERBAL SUPPLEMENT [Concomitant]
  8. VOTRIENT [Suspect]
     Active Substance: PAZOPANIB HYDROCHLORIDE
     Indication: METASTATIC RENAL CELL CARCINOMA
     Route: 048
     Dates: start: 20141013, end: 20141019
  9. KINGCHORELLA HERBAL DETOX SUPPORT SUPPLEMENT [Concomitant]
  10. CYSTEPLUS HERBAL SUPPLEMENT [Concomitant]
  11. VITAMIN K SUPPLEMENT [Concomitant]
  12. AMLODIPINE [Concomitant]
     Active Substance: AMLODIPINE BESYLATE
  13. MELATONIN [Concomitant]
     Active Substance: MELATONIN
  14. MEDICAL MARIJUANA [Concomitant]
     Active Substance: CANNABIS SATIVA SUBSP. INDICA TOP
  15. NATURE THYROYD SUPPLEMENT [Concomitant]
  16. HONOPURE IMMUNE SUPPLEMENT [Concomitant]
  17. CORIOLUS IMMUNE SUPPORT SUPPLEMENT [Concomitant]
  18. METABOLIC DETOX FORMULA [Concomitant]

REACTIONS (5)
  - Vomiting [None]
  - Headache [None]
  - Nausea [None]
  - Pain [None]
  - Ovarian vein thrombosis [None]

NARRATIVE: CASE EVENT DATE: 20141021
